FAERS Safety Report 14291007 (Version 2)
Quarter: 2018Q1

REPORT INFORMATION
  Report Type: Spontaneous
  Country: US (occurrence: US)
  Receive Date: 20171215
  Receipt Date: 20180129
  Transmission Date: 20180509
  Serious: Yes (Hospitalization)
  Sender: FDA-Public Use
  Company Number: US-DSJP-DSU-2017-142778

PATIENT

DRUGS (2)
  1. BENICAR HCT [Suspect]
     Active Substance: HYDROCHLOROTHIAZIDE\OLMESARTAN MEDOXOMIL
     Dosage: 40/25MG (HALF TABLET), QD
     Route: 048
     Dates: start: 20161128, end: 20170728
  2. BENICAR HCT [Suspect]
     Active Substance: HYDROCHLOROTHIAZIDE\OLMESARTAN MEDOXOMIL
     Indication: HYPERTENSION
     Dosage: 20/12.5MG, BID
     Route: 048
     Dates: start: 20090529, end: 20170728

REACTIONS (10)
  - Sprue-like enteropathy [Recovering/Resolving]
  - Portal hypertensive gastropathy [Unknown]
  - Rectal polyp [Unknown]
  - Acute hepatic failure [Unknown]
  - Acute kidney injury [Unknown]
  - Irritable bowel syndrome [Not Recovered/Not Resolved]
  - Drug administration error [Unknown]
  - Hiatus hernia [Unknown]
  - Large intestinal stenosis [Unknown]
  - Gastrooesophageal reflux disease [Not Recovered/Not Resolved]

NARRATIVE: CASE EVENT DATE: 20120229
